FAERS Safety Report 16323502 (Version 2)
Quarter: 2019Q2

REPORT INFORMATION
  Report Type: Spontaneous
  Country: CA (occurrence: CA)
  Receive Date: 20190517
  Receipt Date: 20190613
  Transmission Date: 20190711
  Serious: Yes (Other)
  Sender: FDA-Public Use
  Company Number: CA-CELLTRION INC.-2018CA024948

PATIENT

DRUGS (17)
  1. INFLECTRA [Suspect]
     Active Substance: INFLIXIMAB-DYYB
     Dosage: 300 MG, EVERY 0, 2, 6 WEEKS, THEN EVERY 8 WEEKS
     Route: 042
     Dates: start: 20190107
  2. CRANBERRY. [Concomitant]
     Active Substance: CRANBERRY
     Dosage: 2 DF, 1X/DAY (2 CAPS OD)
  3. INFLECTRA [Suspect]
     Active Substance: INFLIXIMAB-DYYB
     Dosage: 10 MG/KG, EVERY 6 WEEKS
     Route: 042
     Dates: start: 20190403
  4. MEZAVANT [Concomitant]
     Active Substance: MESALAMINE
     Dosage: UNK
     Route: 048
  5. MEZAVANT [Concomitant]
     Active Substance: MESALAMINE
     Dosage: UNK
     Route: 048
  6. INFLECTRA [Suspect]
     Active Substance: INFLIXIMAB-DYYB
     Dosage: 300 MG, UNK
     Route: 042
     Dates: start: 20181210
  7. INFLECTRA [Suspect]
     Active Substance: INFLIXIMAB-DYYB
     Dosage: 10 MG/KG, EVERY 4 WEEKS
  8. INFLECTRA [Suspect]
     Active Substance: INFLIXIMAB-DYYB
     Dosage: 10 MG/KG, EVERY 4 WEEKS
     Route: 042
     Dates: start: 20190502
  9. INFLECTRA [Suspect]
     Active Substance: INFLIXIMAB-DYYB
     Dosage: 10 MG/KG, EVERY 4 WEEKS
     Route: 042
     Dates: start: 20190529
  10. SOLU-MEDROL [Concomitant]
     Active Substance: METHYLPREDNISOLONE SODIUM SUCCINATE
     Dosage: UNK
     Dates: start: 2018, end: 2018
  11. DILAUDID [Concomitant]
     Active Substance: HYDROMORPHONE HYDROCHLORIDE
     Dosage: UNK, AS NEEDED
  12. INFLECTRA [Suspect]
     Active Substance: INFLIXIMAB-DYYB
     Indication: COLITIS ULCERATIVE
     Dosage: 5 MG/KG, EVERY 0, 2, 6 WEEKS, THEN EVERY 8 WEEKS
     Route: 042
     Dates: start: 20181129
  13. TYLENOL [Concomitant]
     Active Substance: ACETAMINOPHEN
     Dosage: UNK, AS NEEDED
  14. INFLECTRA [Suspect]
     Active Substance: INFLIXIMAB-DYYB
     Dosage: 10 MG/KG, EVERY 6 WEEKS
     Route: 042
     Dates: start: 20190222
  15. SOLU-MEDROL [Concomitant]
     Active Substance: METHYLPREDNISOLONE SODIUM SUCCINATE
     Dosage: UNK
     Dates: start: 2018
  16. PREDNISONE. [Concomitant]
     Active Substance: PREDNISONE
     Dosage: 50 MG, UNK (50MG TAPERING DOSES)
     Dates: start: 201811
  17. CAL-D [Concomitant]
     Dosage: UNK, 1X/DAY
     Route: 048

REACTIONS (12)
  - Blood pressure fluctuation [Unknown]
  - Fatigue [Recovering/Resolving]
  - Vein rupture [Unknown]
  - Infectious mononucleosis [Not Recovered/Not Resolved]
  - Drug level below therapeutic [Unknown]
  - Off label use [Unknown]
  - Incorrect dosage administered [Unknown]
  - Therapeutic response shortened [Unknown]
  - Condition aggravated [Recovered/Resolved]
  - Pain [Unknown]
  - Alopecia [Unknown]
  - Product use issue [Unknown]

NARRATIVE: CASE EVENT DATE: 20181210
